FAERS Safety Report 12205930 (Version 3)
Quarter: 2016Q2

REPORT INFORMATION
  Report Type: Spontaneous
  Country: FR (occurrence: FR)
  Receive Date: 20160323
  Receipt Date: 20160502
  Transmission Date: 20160815
  Serious: Yes (Other)
  Sender: FDA-Public Use
  Company Number: FR-ABBVIE-16P-056-1590226-00

PATIENT
  Age: 10 Year
  Sex: Female

DRUGS (2)
  1. MICROPAKINE L.P. [Suspect]
     Active Substance: VALPROATE SODIUM
     Indication: EPILEPSY
     Route: 048
     Dates: start: 201401, end: 20151215
  2. MICROPAKINE L.P. [Suspect]
     Active Substance: VALPROATE SODIUM
     Route: 048
     Dates: start: 20151215

REACTIONS (4)
  - Alopecia [Unknown]
  - Fatigue [Unknown]
  - Periostitis [Unknown]
  - Pain in extremity [Unknown]

NARRATIVE: CASE EVENT DATE: 2016
